FAERS Safety Report 11343159 (Version 2)
Quarter: 2015Q4

REPORT INFORMATION
  Report Type: Spontaneous
  Country: DE (occurrence: DE)
  Receive Date: 20150806
  Receipt Date: 20151020
  Transmission Date: 20160304
  Serious: Yes (Hospitalization)
  Sender: FDA-Public Use
  Company Number: DE-ROCHE-1617951

PATIENT
  Sex: Female
  Weight: 82.08 kg

DRUGS (1)
  1. XOLAIR [Suspect]
     Active Substance: OMALIZUMAB
     Indication: ASTHMA
     Route: 065
     Dates: start: 201312

REACTIONS (4)
  - Protein urine present [Unknown]
  - Blood urine present [Unknown]
  - Fatigue [Recovered/Resolved]
  - Rash [Recovered/Resolved]
